FAERS Safety Report 10184416 (Version 2)
Quarter: 2014Q2

REPORT INFORMATION
  Report Type: Report from Study
  Country: FR (occurrence: FR)
  Receive Date: 20140521
  Receipt Date: 20140521
  Transmission Date: 20141212
  Serious: Yes (Other)
  Sender: FDA-Public Use
  Company Number: FR-ROCHE-1390305

PATIENT
  Age: 88 Year
  Sex: Male

DRUGS (1)
  1. ZELBORAF [Suspect]
     Indication: MALIGNANT MELANOMA
     Dosage: FROM MID 2012 TO THE ONSET OF MAR/2014
     Route: 048
     Dates: start: 2012, end: 201403

REACTIONS (2)
  - Renal failure [Unknown]
  - Blood creatinine increased [Recovering/Resolving]
